FAERS Safety Report 24877054 (Version 2)
Quarter: 2025Q1

REPORT INFORMATION
  Report Type: Spontaneous
  Country: US (occurrence: US)
  Receive Date: 20250123
  Receipt Date: 20250314
  Transmission Date: 20250409
  Serious: Yes (Other)
  Sender: STALLERGENES
  Company Number: US-STALCOR-2025-AER-00204

PATIENT
  Age: 13 Year
  Sex: Male

DRUGS (2)
  1. PALFORZIA [Suspect]
     Active Substance: PEANUT
     Indication: Food allergy
     Dosage: REACTIVE DOSE PRIOR TO REPORTED AE?MAINTENANCE 300MG: LATEST DISPENSE DATE 16-JAN-2025
     Route: 048
     Dates: start: 202501
  2. PALFORZIA [Suspect]
     Active Substance: PEANUT
     Dosage: 300MG: MIX CONTENTS OF 1 SACHET WELL WITH SEMISOLID FOOD AS DIRECTED AND CONSUME ONCE DAILY AT APPRO
     Route: 048
     Dates: start: 202312

REACTIONS (2)
  - Pneumonia [Not Recovered/Not Resolved]
  - Product dose omission issue [Not Recovered/Not Resolved]

NARRATIVE: CASE EVENT DATE: 20250204
